FAERS Safety Report 10891376 (Version 1)
Quarter: 2015Q1

REPORT INFORMATION
  Report Type: Spontaneous
  Country: IT (occurrence: IT)
  Receive Date: 20150306
  Receipt Date: 20150306
  Transmission Date: 20150721
  Serious: Yes (Hospitalization)
  Sender: FDA-Public Use
  Company Number: IT-TEVA-545142ACC

PATIENT
  Age: 74 Year
  Sex: Male

DRUGS (4)
  1. VINBLASTINA TEVA - TEVA ITALIA S.R.L. [Suspect]
     Active Substance: VINBLASTINE
     Indication: PRODUCT USED FOR UNKNOWN INDICATION
     Route: 041
     Dates: start: 20130105, end: 20130108
  2. DOXORUBICINA TEVA - TEVA ITALIA S.R.L. [Suspect]
     Active Substance: DOXORUBICIN
     Indication: PRODUCT USED FOR UNKNOWN INDICATION
     Route: 041
     Dates: start: 20130105, end: 20130108
  3. CISPLATINO TEVA - TEVA PHARMA B.V. [Suspect]
     Active Substance: CISPLATIN
     Indication: PRODUCT USED FOR UNKNOWN INDICATION
     Route: 041
     Dates: start: 20130105, end: 20130108
  4. METOTREXATO HOSPIRA - HOSPIRA ITALIA S.R.L. [Suspect]
     Active Substance: METHOTREXATE
     Indication: BLADDER CANCER RECURRENT
     Route: 041
     Dates: start: 20130105, end: 20130108

REACTIONS (4)
  - Leukopenia [Recovered/Resolved]
  - Thrombocytopenia [Recovered/Resolved]
  - Asthenia [Recovered/Resolved]
  - Mucosal inflammation [Recovered/Resolved]

NARRATIVE: CASE EVENT DATE: 20130114
